FAERS Safety Report 9827537 (Version 1)
Quarter: 2014Q1

REPORT INFORMATION
  Report Type: Spontaneous
  Country: US (occurrence: US)
  Receive Date: 20140117
  Receipt Date: 20140117
  Transmission Date: 20141002
  Serious: No
  Sender: FDA-Public Use
  Company Number: US-BIOGENIDEC-2014BI001284

PATIENT
  Age: 52 Year
  Sex: Female

DRUGS (11)
  1. TECFIDERA [Suspect]
     Indication: MULTIPLE SCLEROSIS
     Route: 048
     Dates: start: 20131031
  2. TECFIDERA [Suspect]
     Indication: MULTIPLE SCLEROSIS
     Route: 048
  3. ADVIL [Concomitant]
  4. CALCIUM CARBONATE [Concomitant]
  5. FLONASE [Concomitant]
  6. LEXAPRO [Concomitant]
  7. PROTONIX [Concomitant]
  8. TYLENOL [Concomitant]
  9. VENTOLIN [Concomitant]
  10. VITAMIN C [Concomitant]
  11. VITAMIN E [Concomitant]

REACTIONS (2)
  - Drug interaction [Recovered/Resolved]
  - Nausea [Recovered/Resolved]
